FAERS Safety Report 8843703 (Version 3)
Quarter: 2012Q4

REPORT INFORMATION
  Report Type: 
  Country: US (occurrence: US)
  Receive Date: 20121016
  Receipt Date: 20121023
  Transmission Date: 20130627
  Serious: No
  Sender: FDA-Public Use
  Company Number: US-VERTEX PHARMACEUTICAL INC.-2012-022514

PATIENT
  Sex: Female
  Weight: 108 kg

DRUGS (6)
  1. INCIVEK [Suspect]
     Indication: HEPATITIS C
     Dosage: 750 mg, tid
     Route: 048
     Dates: start: 20120917
  2. PEGASYS [Suspect]
     Indication: HEPATITIS C
     Dosage: 180 ?g, UNK
     Route: 058
     Dates: start: 20120917
  3. COPEGUS [Suspect]
     Indication: HEPATITIS C
     Dosage: 3 tabs in am, 2 tabs in pm
     Route: 048
     Dates: start: 20120917
  4. METHADONE [Concomitant]
     Indication: BACK PAIN
     Route: 048
  5. DILAUDID [Concomitant]
     Indication: BACK PAIN
  6. XANAX [Concomitant]
     Indication: BACK PAIN

REACTIONS (5)
  - Irritability [Not Recovered/Not Resolved]
  - Insomnia [Not Recovered/Not Resolved]
  - Decreased appetite [Not Recovered/Not Resolved]
  - Acne [Not Recovered/Not Resolved]
  - Fatigue [Not Recovered/Not Resolved]
